FAERS Safety Report 5947866-1 (Version None)
Quarter: 2008Q4

REPORT INFORMATION
  Report Type: 
  Country: None (occurrence: None)
  Receive Date: 20081110
  Receipt Date: 20081110
  Transmission Date: 20090506
  Serious: Yes (Hospitalization)
  Sender: FDA-Public Use
  Company Number: None

PATIENT
  Age: 57 Year
  Sex: Male

DRUGS (2)
  1. LISINOPRIL [Suspect]
     Indication: HYPERTENSION
     Dosage: 20 MG EVERY DAY PO
     Route: 048
     Dates: start: 20080630, end: 20081105
  2. DOXYCYCLINE [Suspect]
     Indication: CELLULITIS
     Dosage: 100 MG BID PO
     Route: 048
     Dates: start: 20081105, end: 20081105

REACTIONS (1)
  - ANGIOEDEMA [None]
